FAERS Safety Report 12502058 (Version 3)
Quarter: 2016Q4

REPORT INFORMATION
  Report Type: Report from Study
  Country: CA (occurrence: CA)
  Receive Date: 20160627
  Receipt Date: 20161229
  Transmission Date: 20170207
  Serious: Yes (Other)
  Sender: FDA-Public Use
  Company Number: CA-GILEAD-2016-0220629

PATIENT
  Age: 50 Year
  Sex: Female

DRUGS (2)
  1. IBAVYR [Suspect]
     Active Substance: RIBAVIRIN
     Indication: CHRONIC HEPATITIS C
     Dosage: 1200 MG, QD
     Route: 048
     Dates: start: 20160531
  2. SOFOSBUVIR [Suspect]
     Active Substance: SOFOSBUVIR
     Indication: CHRONIC HEPATITIS C
     Dosage: 400 MG, QD
     Route: 048
     Dates: start: 20160531

REACTIONS (20)
  - Deafness [Unknown]
  - Hepatic cirrhosis [Unknown]
  - Hepatic pain [Not Recovered/Not Resolved]
  - Skin discolouration [Unknown]
  - Rash pustular [Unknown]
  - Hyperhidrosis [Not Recovered/Not Resolved]
  - Swelling [Recovering/Resolving]
  - Rash [Unknown]
  - Contusion [Not Recovered/Not Resolved]
  - Ulcer [Not Recovered/Not Resolved]
  - Fear [Unknown]
  - Necrotising soft tissue infection [Not Recovered/Not Resolved]
  - Pain [Recovering/Resolving]
  - Nausea [Unknown]
  - Malaise [Not Recovered/Not Resolved]
  - Somnolence [Unknown]
  - Wound [Unknown]
  - Hypoacusis [Unknown]
  - Localised infection [Not Recovered/Not Resolved]
  - Fatigue [Not Recovered/Not Resolved]

NARRATIVE: CASE EVENT DATE: 2016
